FAERS Safety Report 8934170 (Version 1)
Quarter: 2012Q4

REPORT INFORMATION
  Report Type: 
  Country: US (occurrence: US)
  Receive Date: 20121129
  Receipt Date: 20121129
  Transmission Date: 20130627
  Serious: No
  Sender: FDA-Public Use
  Company Number: US-GLAXOSMITHKLINE-A0988096A

PATIENT
  Age: 72 Year
  Sex: Male

DRUGS (15)
  1. WELLBUTRIN SR [Suspect]
     Indication: DEPRESSION
     Dosage: 100MG Per day
     Route: 048
  2. METFORMIN [Concomitant]
  3. JANUVIA [Concomitant]
  4. CLONIDINE [Concomitant]
  5. ATENOLOL [Concomitant]
  6. CITALOPRAM [Concomitant]
  7. LISINOPRIL [Concomitant]
  8. FUROSEMIDE [Concomitant]
  9. TRAZODONE [Concomitant]
  10. VITORIN [Concomitant]
  11. ASPIRIN [Concomitant]
  12. FLAX SEED OIL [Concomitant]
  13. CALCIUM [Concomitant]
  14. GLUCOSAMINE [Concomitant]
  15. B100 COMPLEX [Concomitant]

REACTIONS (6)
  - Arthralgia [Not Recovered/Not Resolved]
  - Myalgia [Unknown]
  - Oedema peripheral [Unknown]
  - Hot flush [Unknown]
  - Fatigue [Unknown]
  - Fall [Unknown]
